FAERS Safety Report 25122622 (Version 1)
Quarter: 2025Q1

REPORT INFORMATION
  Report Type: Spontaneous
  Country: FR (occurrence: FR)
  Receive Date: 20250326
  Receipt Date: 20250326
  Transmission Date: 20250409
  Serious: Yes (Hospitalization)
  Sender: BANNER
  Company Number: None

PATIENT
  Age: 12 Year
  Sex: Female
  Weight: 125.5 kg

DRUGS (4)
  1. DIAMOX SEQUELS [Suspect]
     Active Substance: ACETAZOLAMIDE
     Indication: Idiopathic intracranial hypertension
     Dosage: ACETAZOLAMIDE
     Route: 048
     Dates: start: 20240129
  2. IBUPROFEN [Suspect]
     Active Substance: IBUPROFEN
     Indication: Idiopathic intracranial hypertension
     Dosage: IF NECESSARY
     Route: 048
     Dates: start: 20240129
  3. POTASSIUM CHLORIDE [Concomitant]
     Active Substance: POTASSIUM CHLORIDE
     Indication: Idiopathic intracranial hypertension
     Route: 048
     Dates: start: 20240129
  4. SODIUM BICARBONATE [Concomitant]
     Active Substance: SODIUM BICARBONATE
     Indication: Idiopathic intracranial hypertension
     Route: 048
     Dates: start: 20240308

REACTIONS (1)
  - Menometrorrhagia [Not Recovered/Not Resolved]

NARRATIVE: CASE EVENT DATE: 20241207
